FAERS Safety Report 7389753-0 (Version None)
Quarter: 2011Q2

REPORT INFORMATION
  Report Type: 
  Country: None (occurrence: None)
  Receive Date: 20110401
  Receipt Date: 20110322
  Transmission Date: 20111010
  Serious: Yes (Death, Hospitalization, Other)
  Sender: FDA-Public Use
  Company Number: JP-CELGENEUS-087-21880-10111720

PATIENT
  Sex: Male

DRUGS (21)
  1. REVLIMID [Suspect]
     Dosage: 15 MILLIGRAM
     Route: 048
     Dates: start: 20100916, end: 20100929
  2. REVLIMID [Suspect]
     Dosage: 15 MILLIGRAM
     Route: 048
     Dates: start: 20101103, end: 20101106
  3. LENADEX [Suspect]
     Indication: MULTIPLE MYELOMA
     Dosage: 16 MILLIGRAM
     Route: 048
     Dates: start: 20100812, end: 20100831
  4. LENADEX [Suspect]
     Dosage: 24 MILLIGRAM
     Route: 048
     Dates: start: 20101111, end: 20101114
  5. LENADEX [Suspect]
     Dosage: 40 MILLIGRAM
     Route: 048
     Dates: start: 20101211, end: 20101214
  6. IMMUNE GLOBULIN INTRAVENOUS (HUMAN) [Concomitant]
     Dosage: 5 GRAM
     Route: 065
     Dates: start: 20110116, end: 20110118
  7. LENADEX [Suspect]
     Dosage: 32 MILLIGRAM
     Route: 048
     Dates: start: 20101203, end: 20101206
  8. LENADEX [Suspect]
     Dosage: 40 MILLIGRAM
     Route: 048
     Dates: start: 20101219, end: 20101222
  9. LENADEX [Suspect]
     Dosage: 40 MILLIGRAM
     Route: 048
     Dates: start: 20110108, end: 20110111
  10. ASPIRIN [Concomitant]
     Indication: INFECTION
     Dosage: 100 MILLIGRAM
     Route: 048
  11. REVLIMID [Suspect]
     Indication: MULTIPLE MYELOMA
     Dosage: 10 MILLIGRAM
     Route: 048
     Dates: start: 20100812, end: 20100828
  12. REVLIMID [Suspect]
     Dosage: 15 MILLIGRAM
     Route: 048
     Dates: start: 20101006, end: 20101026
  13. LENADEX [Suspect]
     Dosage: 32 MILLIGRAM
     Route: 048
     Dates: start: 20101119, end: 20101122
  14. LENADEX [Suspect]
     Dosage: 20 MILLIGRAM
     Route: 048
     Dates: start: 20100812, end: 20110106
  15. REVLIMID [Suspect]
     Dosage: 15 MILLIGRAM
     Route: 048
     Dates: start: 20101203, end: 20101220
  16. REVLIMID [Suspect]
     Dosage: 15 MILLIGRAM
     Route: 048
     Dates: start: 20101231, end: 20110106
  17. LENADEX [Suspect]
     Dosage: 12 MILLIGRAM
     Route: 048
     Dates: start: 20100909, end: 20100912
  18. REVLIMID [Suspect]
     Dosage: 10 MILLIGRAM
     Route: 048
     Dates: start: 20100909, end: 20100915
  19. LENADEX [Suspect]
     Dosage: 16 MILLIGRAM
     Route: 048
     Dates: start: 20100917, end: 20100929
  20. LENADEX [Suspect]
     Dosage: 16 MILLIGRAM
     Route: 048
     Dates: start: 20101006, end: 20101026
  21. LENADEX [Suspect]
     Dosage: 40 MILLIGRAM
     Route: 048
     Dates: start: 20101231, end: 20110103

REACTIONS (7)
  - NEUTROPENIA [None]
  - LIVER DISORDER [None]
  - PNEUMONIA [None]
  - ANAEMIA [None]
  - INFLUENZA [None]
  - THROMBOCYTOPENIA [None]
  - DISSEMINATED INTRAVASCULAR COAGULATION [None]
